FAERS Safety Report 20337335 (Version 1)
Quarter: 2022Q1

REPORT INFORMATION
  Report Type: Spontaneous
  Country: US (occurrence: US)
  Receive Date: 20220114
  Receipt Date: 20220114
  Transmission Date: 20220423
  Serious: No
  Sender: FDA-Public Use
  Company Number: US-SA-SAC20220107000776

PATIENT
  Sex: Male

DRUGS (1)
  1. FABRAZYME [Suspect]
     Active Substance: AGALSIDASE BETA
     Indication: Fabry^s disease
     Dosage: 65 MG, QOW
     Route: 042
     Dates: start: 2021

REACTIONS (5)
  - Proteinuria [Unknown]
  - Diplopia [Unknown]
  - Burning sensation [Recovered/Resolved]
  - Oedema peripheral [Unknown]
  - Paraesthesia [Recovered/Resolved]
